FAERS Safety Report 8625004-4 (Version None)
Quarter: 2012Q3

REPORT INFORMATION
  Report Type: 
  Country: None (occurrence: None)
  Receive Date: 20120827
  Receipt Date: 20120820
  Transmission Date: 20120928
  Serious: Yes (Death, Hospitalization)
  Sender: FDA-Public Use
  Company Number: US-CELGENEUS-163-C4047-12051584

PATIENT
  Sex: Male
  Weight: 77.18 kg

DRUGS (29)
  1. DEXAMETHASONE [Suspect]
     Route: 065
  2. ATENOLOL [Concomitant]
     Dosage: 100 MILLIGRAM
     Route: 048
  3. HYDROCORTISONE [Concomitant]
     Dosage: 5 PERCENT
     Route: 061
  4. OMEGA-3 FATTY ACIDS [Concomitant]
     Dosage: 4 GRAM
     Route: 048
  5. POTASSIUM CHLORIDE [Concomitant]
     Dosage: 40 MILLIEQUIVALENTS
     Route: 048
  6. ATORVASTATIN CALCIUM [Concomitant]
     Dosage: 10 MILLIGRAM
     Route: 048
  7. METFORMIN HCL [Concomitant]
     Dosage: 2000 MILLIGRAM
     Route: 048
  8. CC-4047 [Suspect]
     Dosage: 4 MILLIGRAM
     Route: 048
     Dates: start: 20120504, end: 20120508
  9. AMLODIPINE [Concomitant]
     Dosage: 10 MILLIGRAM
     Route: 048
  10. VASOTEC [Concomitant]
     Dosage: 20 MILLIGRAM
     Route: 048
  11. GLYBURIDE [Concomitant]
     Dosage: 5 MILLIGRAM
     Route: 048
  12. ZOMETA [Concomitant]
     Dosage: 4MG/5ML
     Route: 065
  13. CC-4047 [Suspect]
     Indication: MULTIPLE MYELOMA
     Dosage: 4 MILLIGRAM
     Route: 048
     Dates: start: 20120412, end: 20120416
  14. CLARITHROMYCIN [Suspect]
     Indication: MULTIPLE MYELOMA
     Dosage: 1000 MILLIGRAM
     Route: 048
     Dates: start: 20120412
  15. PRILOSEC [Concomitant]
     Dosage: 20 MILLIGRAM
     Route: 048
  16. CC-4047 [Suspect]
     Dosage: 2 MILLIGRAM
     Route: 048
     Dates: start: 20120508
  17. MAGNESIUM OXIDE [Concomitant]
     Dosage: 400 MILLIGRAM
     Route: 048
  18. NIASPAN [Concomitant]
     Dosage: 500 MILLIGRAM
     Route: 048
  19. TYLENOL [Concomitant]
     Route: 065
  20. CC-4047 [Suspect]
     Dosage: 2 MILLIGRAM
     Route: 048
     Dates: start: 20120427
  21. ACTOS [Concomitant]
     Dosage: 30 MILLIGRAM
     Route: 048
  22. IMODIUM [Concomitant]
     Route: 065
     Dates: start: 20120301
  23. DEXAMETHASONE [Suspect]
     Indication: MULTIPLE MYELOMA
     Dosage: 40 MILLIGRAM
     Route: 048
     Dates: start: 20120412
  24. VALTREX [Concomitant]
     Dosage: 1000 MILLIGRAM
     Route: 048
  25. REVLIMID [Suspect]
     Dosage: 5 MILLIGRAM
     Route: 048
  26. ASPIRIN [Concomitant]
     Dosage: 81 MILLIGRAM
     Route: 048
  27. DARBEPOETIN ALFA-POLYSORBATE [Concomitant]
     Dosage: .45 MICROGRAM/KILOGRAM
     Route: 065
  28. FEOSOL [Concomitant]
     Dosage: 200 MILLIGRAM
     Route: 048
  29. HYDROCORTISONE [Concomitant]
     Dosage: 100 MILLIGRAM
     Route: 041
     Dates: start: 20120501

REACTIONS (2)
  - PANCYTOPENIA [None]
  - SEPSIS [None]
